FAERS Safety Report 9905454 (Version 1)
Quarter: 2014Q1

REPORT INFORMATION
  Report Type: Spontaneous
  Country: CA (occurrence: CA)
  Receive Date: 20140218
  Receipt Date: 20140218
  Transmission Date: 20141002
  Serious: Yes (Other)
  Sender: FDA-Public Use
  Company Number: CA-ASTRAZENECA-2014SE10149

PATIENT
  Age: 77 Year
  Sex: Male
  Weight: 91.2 kg

DRUGS (7)
  1. BRILINTA [Suspect]
     Route: 048
  2. ACETAMINOPHEN [Interacting]
     Route: 048
  3. ATORVASTATIN CALCIUM [Interacting]
     Route: 048
  4. ALFUZOSIN [Concomitant]
  5. ASAPHEN EC [Concomitant]
  6. METOPROLOL [Concomitant]
  7. OPHTHALMOLOGICALS [Concomitant]

REACTIONS (4)
  - Drug interaction [Recovered/Resolved]
  - Alanine aminotransferase increased [Recovered/Resolved]
  - Aspartate aminotransferase increased [Recovered/Resolved]
  - Blood lactate dehydrogenase increased [Recovered/Resolved]
